FAERS Safety Report 17050590 (Version 1)
Quarter: 2019Q4

REPORT INFORMATION
  Report Type: Spontaneous
  Country: CN (occurrence: CN)
  Receive Date: 20191119
  Receipt Date: 20191119
  Transmission Date: 20200122
  Serious: Yes (Death, Life-Threatening, Hospitalization, Other)
  Sender: FDA-Public Use
  Company Number: CN-BAXTER-2019BAX023530

PATIENT
  Age: 72 Year
  Sex: Male

DRUGS (15)
  1. ENDOXAN [Suspect]
     Active Substance: CYCLOPHOSPHAMIDE
     Dosage: 300 MG/M^2/W FOR 4 WEEKS; CYCLICAL (300 MG/M2,6 CYCLICAL)
     Route: 065
     Dates: start: 20130416
  2. DEXAMETHASONE. [Suspect]
     Active Substance: DEXAMETHASONE
     Route: 065
     Dates: start: 201605
  3. DOXIL [Suspect]
     Active Substance: DOXORUBICIN HYDROCHLORIDE
     Indication: PLASMA CELL MYELOMA
     Dosage: PER DAY (10 MG/M2/D FOR DAYS 1-4); 2 CYCLICAL
     Route: 065
     Dates: start: 20130130, end: 201304
  4. VELCADE [Suspect]
     Active Substance: BORTEZOMIB
     Indication: PLASMA CELL MYELOMA
     Route: 065
     Dates: start: 20171124
  5. LENALIDOMIDE [Suspect]
     Active Substance: LENALIDOMIDE
     Indication: PLASMA CELL MYELOMA
     Dosage: (FROM DAYS 1-21); CYCLICAL (15 MG,6 CYCLICAL)
     Route: 065
     Dates: start: 20130416
  6. DEXAMETHASONE. [Suspect]
     Active Substance: DEXAMETHASONE
     Dosage: 40 MG/DAY (DAYS 1-4); CYCLICAL (40 MG,2 CYCLICAL)
     Route: 065
     Dates: start: 20130130, end: 201304
  7. LENALIDOMIDE [Suspect]
     Active Substance: LENALIDOMIDE
     Dosage: MAINTENANCE THERAPY, 15 MG/DAY FOR 21 DAYS WITH AN INTERVAL OF 7 DAYS IN A 28-DAY-COURSE TREATMENT
     Route: 065
  8. DEXAMETHASONE. [Suspect]
     Active Substance: DEXAMETHASONE
     Route: 065
     Dates: start: 20171124
  9. INSULIN [Concomitant]
     Active Substance: INSULIN NOS
     Indication: DIABETES MELLITUS
     Route: 065
  10. VELCADE [Suspect]
     Active Substance: BORTEZOMIB
     Route: 065
     Dates: start: 201605
  11. VINCRISTINE [Suspect]
     Active Substance: VINCRISTINE
     Indication: PLASMA CELL MYELOMA
     Dosage: PER DAY (FROM THE FIRST DAY 4); CYCLICAL (0.5 MG,2 CYCLICAL)
     Route: 065
     Dates: start: 20130130, end: 201304
  12. VORICONAZOLE. [Suspect]
     Active Substance: VORICONAZOLE
     Indication: ASPERGILLUS INFECTION
     Dosage: REDUCED DOSE
     Route: 048
     Dates: start: 201712
  13. ENDOXAN [Suspect]
     Active Substance: CYCLOPHOSPHAMIDE
     Indication: PLASMA CELL MYELOMA
     Dosage: 300 MG/M^2/W FOR 4 WEEKS (300 MG,1 WK)
     Route: 065
     Dates: start: 20171124
  14. DEXAMETHASONE. [Suspect]
     Active Substance: DEXAMETHASONE
     Indication: PLASMA CELL MYELOMA
     Dosage: 40 MG PER WEEK; CYCLICAL (40 MG,6 CYCLICAL)
     Route: 065
     Dates: start: 20130416
  15. VORICONAZOLE. [Suspect]
     Active Substance: VORICONAZOLE
     Route: 048
     Dates: start: 201710

REACTIONS (6)
  - Acute myocardial infarction [Fatal]
  - Pneumonia [Unknown]
  - Platelet count decreased [Unknown]
  - Coma [Not Recovered/Not Resolved]
  - Aspergillus infection [Unknown]
  - Mucormycosis [Not Recovered/Not Resolved]

NARRATIVE: CASE EVENT DATE: 201710
